FAERS Safety Report 4332012-0 (Version None)
Quarter: 2004Q2

REPORT INFORMATION
  Report Type: 
  Country: None (occurrence: None)
  Receive Date: 20040405
  Receipt Date: 20040120
  Transmission Date: 20050107
  Serious: No
  Sender: FDA-Public Use
  Company Number: US-GLAXOSMITHKLINE-A0494245A

PATIENT
  Sex: Female

DRUGS (6)
  1. SEREVENT [Suspect]
     Indication: ASTHMA
     Route: 055
     Dates: start: 19990401, end: 19990403
  2. SINGULAIR [Concomitant]
  3. PAXIL [Concomitant]
  4. XANAX [Concomitant]
  5. UNKNOWN MEDICATION [Concomitant]
  6. CELEBREX [Concomitant]

REACTIONS (1)
  - ORAL CANDIDIASIS [None]
